FAERS Safety Report 9739508 (Version 1)
Quarter: 2013Q4

REPORT INFORMATION
  Report Type: Spontaneous
  Country: US (occurrence: US)
  Receive Date: 20131209
  Receipt Date: 20131209
  Transmission Date: 20140711
  Serious: Yes (Other)
  Sender: FDA-Public Use
  Company Number: US-BAYER-2013-148714

PATIENT
  Age: 38 Year
  Sex: Female
  Weight: 72.56 kg

DRUGS (4)
  1. YAZ [Suspect]
  2. YASMIN [Suspect]
  3. ALEVE [Concomitant]
  4. ACETAMINOPHEN [Concomitant]

REACTIONS (1)
  - Pulmonary embolism [None]
